FAERS Safety Report 19204700 (Version 3)
Quarter: 2022Q1

REPORT INFORMATION
  Report Type: Spontaneous
  Country: US (occurrence: US)
  Receive Date: 20210503
  Receipt Date: 20220330
  Transmission Date: 20220423
  Serious: Yes (Disabling, Other)
  Sender: FDA-Public Use
  Company Number: US-SA-SAC20210430000949

PATIENT
  Age: 60 Year
  Sex: Female

DRUGS (2)
  1. AUBAGIO [Suspect]
     Active Substance: TERIFLUNOMIDE
     Indication: Multiple sclerosis
     Dosage: 14 MG, QD
     Route: 048
     Dates: start: 20200410
  2. AUBAGIO [Suspect]
     Active Substance: TERIFLUNOMIDE
     Dosage: 14 MG
     Route: 048
     Dates: start: 20210916

REACTIONS (7)
  - Multiple sclerosis [Unknown]
  - Hypoaesthesia [Unknown]
  - Gait disturbance [Unknown]
  - Asthenia [Unknown]
  - Fall [Unknown]
  - Product dose omission issue [Unknown]
  - Paraesthesia [Unknown]

NARRATIVE: CASE EVENT DATE: 20201201
